FAERS Safety Report 24974391 (Version 3)
Quarter: 2025Q2

REPORT INFORMATION
  Report Type: Spontaneous
  Country: US (occurrence: US)
  Receive Date: 20250217
  Receipt Date: 20250404
  Transmission Date: 20250717
  Serious: No
  Sender: ROCHE
  Company Number: US-ROCHE-10000201845

PATIENT
  Age: 55 Year
  Sex: Female
  Weight: 95 kg

DRUGS (2)
  1. ALECENSA [Suspect]
     Active Substance: ALECTINIB HYDROCHLORIDE
     Indication: Non-small cell lung cancer
     Dosage: 150MG CAPSULES TAKE 4 CAPSULES (600MG) BY MOUTH 2 TIMES A DAY WITH FOOD,
     Route: 048
     Dates: start: 20201005
  2. METHYLPHENIDATE [Concomitant]
     Active Substance: METHYLPHENIDATE
     Indication: Attention deficit hyperactivity disorder
     Route: 048

REACTIONS (12)
  - Spinal disorder [Recovering/Resolving]
  - Fatigue [Recovering/Resolving]
  - Oedema peripheral [Recovering/Resolving]
  - Stress [Recovering/Resolving]
  - Rash [Unknown]
  - Peripheral swelling [Unknown]
  - Gastrointestinal disorder [Unknown]
  - Attention deficit hyperactivity disorder [Not Recovered/Not Resolved]
  - COVID-19 [Recovered/Resolved]
  - Abdominal pain [Recovered/Resolved]
  - Musculoskeletal stiffness [Unknown]
  - Foot deformity [Unknown]

NARRATIVE: CASE EVENT DATE: 20210203
